FAERS Safety Report 9718666 (Version 1)
Quarter: 2013Q4

REPORT INFORMATION
  Report Type: Not Available
  Country: US (occurrence: US)
  Receive Date: 20131125
  Receipt Date: 20131125
  Transmission Date: 20140711
  Serious: No
  Sender: FDA-Public Use
  Company Number: US-H. LUNDBECK A/S-DKLU1090746

PATIENT
  Sex: Female

DRUGS (3)
  1. ONFI [Suspect]
     Indication: CONVULSION
     Route: 048
     Dates: start: 20111015, end: 201208
  2. PRIMIDONE [Concomitant]
     Indication: PRODUCT USED FOR UNKNOWN INDICATION
  3. PHENYTOIN [Concomitant]
     Indication: PRODUCT USED FOR UNKNOWN INDICATION

REACTIONS (7)
  - Local swelling [Unknown]
  - Weight increased [Unknown]
  - Nausea [Unknown]
  - Somnolence [Unknown]
  - Somnolence [Unknown]
  - Constipation [Unknown]
  - Vomiting [Unknown]
